FAERS Safety Report 12054263 (Version 3)
Quarter: 2016Q1

REPORT INFORMATION
  Report Type: Other
  Country: US (occurrence: US)
  Receive Date: 20160209
  Receipt Date: 20160331
  Transmission Date: 20160526
  Serious: Yes (Other)
  Sender: FDA-Public Use
  Company Number: US-SHIRE-US201600996

PATIENT
  Age: 32 Year
  Sex: Female

DRUGS (3)
  1. CINRYZE [Suspect]
     Active Substance: HUMAN C1-ESTERASE INHIBITOR
     Indication: PROPHYLAXIS
     Dosage: 1000 UNITS, OTHER (Q4D)
     Route: 042
     Dates: start: 2016
  2. FIRAZYR [Concomitant]
     Active Substance: ICATIBANT ACETATE
     Indication: HEREDITARY ANGIOEDEMA
     Dosage: 30 MG, AS REQ^D
     Route: 058
     Dates: start: 20140711
  3. CINRYZE [Suspect]
     Active Substance: HUMAN C1-ESTERASE INHIBITOR
     Indication: HEREDITARY ANGIOEDEMA
     Dosage: 1000 UNITS OTHER (EVERY 4 DAYS)
     Route: 042
     Dates: start: 2012, end: 20160122

REACTIONS (8)
  - Tremor [Unknown]
  - Hereditary angioedema [Unknown]
  - Hyperhidrosis [Unknown]
  - Somnolence [Unknown]
  - Infusion related reaction [Unknown]
  - Dizziness [Unknown]
  - Hypertension [Unknown]
  - Chills [Unknown]

NARRATIVE: CASE EVENT DATE: 20160301
